FAERS Safety Report 7901973-2 (Version None)
Quarter: 2011Q4

REPORT INFORMATION
  Report Type: 
  Country: None (occurrence: None)
  Receive Date: 20111108
  Receipt Date: 20111029
  Transmission Date: 20120403
  Serious: Yes (Other)
  Sender: FDA-Public Use
  Company Number: CA-US-EMD SERONO, INC.-7093118

PATIENT
  Sex: Female

DRUGS (3)
  1. LUVERIS [Suspect]
     Indication: PRODUCT USED FOR UNKNOWN INDICATION
     Route: 058
     Dates: start: 20111021
  2. GONAL-F [Suspect]
     Indication: PRODUCT USED FOR UNKNOWN INDICATION
     Route: 058
     Dates: start: 20111021
  3. ORGANLUTRAN [Suspect]
     Indication: PRODUCT USED FOR UNKNOWN INDICATION
     Route: 058
     Dates: start: 20111028

REACTIONS (4)
  - VAGINAL HAEMORRHAGE [None]
  - FOETAL EXPOSURE DURING PREGNANCY [None]
  - PREGNANCY [None]
  - ABDOMINAL DISCOMFORT [None]
